FAERS Safety Report 6274751-0 (Version None)
Quarter: 2009Q3

REPORT INFORMATION
  Report Type: 
  Country: None (occurrence: None)
  Receive Date: 20090721
  Receipt Date: 20070821
  Transmission Date: 20100115
  Serious: Yes (Other)
  Sender: FDA-Public Use
  Company Number: US-ASTRAZENECA-2007UW12108

PATIENT
  Age: 20193 Day
  Sex: Female

DRUGS (13)
  1. SEROQUEL [Suspect]
     Indication: SLEEP DISORDER
     Dates: start: 20001201, end: 20021201
  2. SEROQUEL [Suspect]
     Dosage: 12.5- 200 MG
     Route: 048
     Dates: start: 20000211, end: 20060614
  3. DEPAKOTE ER [Concomitant]
     Dosage: 250-750
     Dates: start: 20000714
  4. EFFEXOR XR [Concomitant]
     Route: 048
     Dates: start: 20000714
  5. NEURONTIN [Concomitant]
     Dosage: 300-900 MG
     Dates: start: 20000714
  6. TRAZODONE [Concomitant]
     Route: 048
     Dates: start: 20010926
  7. XANAX [Concomitant]
     Dosage: 0.5-3 MG
     Dates: start: 20000714
  8. BENZTROPINE [Concomitant]
     Dosage: 0.5-1.5 MG
     Route: 048
     Dates: start: 20020109
  9. SYNTHROID [Concomitant]
     Route: 048
     Dates: start: 20030108
  10. VICODIN [Concomitant]
     Indication: MIGRAINE
     Dosage: 5/500 1-2 EVERY 4 HOURS
     Route: 048
     Dates: start: 20031023
  11. VICODIN [Concomitant]
     Indication: HEADACHE
     Dosage: 5/500 1-2 EVERY 4 HOURS
     Route: 048
     Dates: start: 20031023
  12. AMERGE [Concomitant]
     Indication: HEADACHE
     Dosage: 2.5 DAILY
     Route: 048
     Dates: start: 20031023
  13. KLONOPIN [Concomitant]
     Dosage: 0.5 TWO TIMES A DAY
     Dates: start: 20000714

REACTIONS (4)
  - DIABETES MELLITUS [None]
  - HYPERGLYCAEMIA [None]
  - NEUROPATHY PERIPHERAL [None]
  - TYPE 2 DIABETES MELLITUS [None]
